FAERS Safety Report 9137774 (Version 3)
Quarter: 2013Q2

REPORT INFORMATION
  Report Type: Spontaneous
  Country: BR (occurrence: BR)
  Receive Date: 20130304
  Receipt Date: 20130523
  Transmission Date: 20140414
  Serious: Yes (Hospitalization)
  Sender: FDA-Public Use
  Company Number: BR-PFIZER INC-2013072897

PATIENT
  Age: 59 Year
  Sex: Female
  Weight: 71.2 kg

DRUGS (4)
  1. LIPITOR [Suspect]
     Indication: HYPERCHOLESTEROLAEMIA
     Dosage: 10 MG, 1X/DAY
     Route: 048
     Dates: start: 20120827
  2. SYNTHROID [Concomitant]
     Indication: HYPOTHYROIDISM
     Dosage: 112 UG, 1X/DAY
     Dates: start: 1987
  3. ABLOK [Concomitant]
     Dosage: 25 MG, 2X/DAY
  4. DIOVAN [Concomitant]
     Indication: HYPERTENSION
     Dosage: 1 DF (160/ 12.5 MG) , 1X/DAY
     Dates: start: 2010

REACTIONS (2)
  - Cerebrovascular accident [Unknown]
  - Drug ineffective [Unknown]
